FAERS Safety Report 15813231 (Version 1)
Quarter: 2019Q1

REPORT INFORMATION
  Report Type: Spontaneous
  Country: US (occurrence: US)
  Receive Date: 20190111
  Receipt Date: 20190111
  Transmission Date: 20190417
  Serious: Yes (Life-Threatening, Hospitalization)
  Sender: FDA-Public Use
  Company Number: None

PATIENT
  Age: 59 Year
  Sex: Female
  Weight: 56.7 kg

DRUGS (1)
  1. PROHANCE [Suspect]
     Active Substance: GADOTERIDOL
     Indication: NUCLEAR MAGNETIC RESONANCE IMAGING
     Dosage: ?          OTHER FREQUENCY:ONE TIME USE;?
     Route: 040
     Dates: start: 20190110, end: 20190110

REACTIONS (2)
  - Anaphylactic reaction [None]
  - Contrast media reaction [None]

NARRATIVE: CASE EVENT DATE: 20190110
